FAERS Safety Report 5656855-6 (Version None)
Quarter: 2008Q1

REPORT INFORMATION
  Report Type: 
  Country: None (occurrence: None)
  Receive Date: 20080219
  Receipt Date: 20071031
  Transmission Date: 20080703
  Serious: No
  Sender: FDA-Public Use
  Company Number: WAES 0711USA00014

PATIENT
  Age: 62 Year
  Sex: Female

DRUGS (8)
  1. JANUVIA [Suspect]
     Indication: TYPE 2 DIABETES MELLITUS
     Dosage: 100 MG/DAILY/PO
     Route: 048
     Dates: start: 20070501
  2. ALTACE [Concomitant]
  3. AVALIDE [Concomitant]
  4. NORVASC [Concomitant]
  5. PREVACID [Concomitant]
  6. GLYBURIDE [Concomitant]
  7. LABETALOL HYDROCHLORIDE [Concomitant]
  8. METFORMIN [Concomitant]

REACTIONS (2)
  - ABDOMINAL DISTENSION [None]
  - STOMACH DISCOMFORT [None]
